FAERS Safety Report 10031042 (Version 2)
Quarter: 2014Q1

REPORT INFORMATION
  Report Type: Spontaneous
  Country: AR (occurrence: AR)
  Receive Date: 20140324
  Receipt Date: 20140324
  Transmission Date: 20141002
  Serious: Yes (Other)
  Sender: FDA-Public Use
  Company Number: AR-BIOGENIDEC-2013BI117617

PATIENT
  Age: 56 Year
  Sex: Female

DRUGS (3)
  1. AVONEX [Suspect]
     Indication: MULTIPLE SCLEROSIS
     Route: 030
     Dates: start: 20131113
  2. ALPRAZOLAM [Concomitant]
     Route: 048
  3. ENALAPRIL [Concomitant]
     Route: 048

REACTIONS (4)
  - Encephalitis [Unknown]
  - Thyroid disorder [Unknown]
  - Hallucination, visual [Not Recovered/Not Resolved]
  - Pyrexia [Recovered/Resolved]
